FAERS Safety Report 13996774 (Version 2)
Quarter: 2019Q1

REPORT INFORMATION
  Report Type: Spontaneous
  Country: US (occurrence: US)
  Receive Date: 20170921
  Receipt Date: 20190212
  Transmission Date: 20190417
  Serious: No
  Sender: FDA-Public Use
  Company Number: US-PFIZER INC-2017405594

PATIENT
  Age: 76 Year
  Sex: Female

DRUGS (1)
  1. IBRANCE [Suspect]
     Active Substance: PALBOCICLIB
     Dosage: 100 MG, CYCLIC [1 CAP PO QD X 21D THEN 7D OFF]
     Route: 048
     Dates: start: 20170524

REACTIONS (2)
  - Product dose omission [Unknown]
  - Alopecia [Unknown]
